FAERS Safety Report 16817710 (Version 1)
Quarter: 2019Q4

REPORT INFORMATION
  Report Type: Spontaneous
  Country: US (occurrence: US)
  Receive Date: 20190917
  Receipt Date: 20190917
  Transmission Date: 20200122
  Serious: Yes (Other)
  Sender: FDA-Public Use
  Company Number: None

PATIENT
  Age: 11 Month
  Sex: Female
  Weight: 8.1 kg

DRUGS (1)
  1. AMOXICILLIN AND CLAVULANATE POTASSIUM [Suspect]
     Active Substance: AMOXICILLIN\CLAVULANATE POTASSIUM
     Indication: EAR INFECTION
     Dosage: ?          QUANTITY:125 ML;?
     Route: 048
     Dates: start: 20190911, end: 20190914

REACTIONS (7)
  - Skin erosion [None]
  - Abdominal distension [None]
  - Diarrhoea [None]
  - Incorrect dose administered [None]
  - Overdose [None]
  - Dermatitis diaper [None]
  - Abdominal discomfort [None]

NARRATIVE: CASE EVENT DATE: 20190912
